FAERS Safety Report 9798460 (Version 1)
Quarter: 2013Q4

REPORT INFORMATION
  Report Type: Spontaneous
  Country: AU (occurrence: None)
  Receive Date: 20131230
  Receipt Date: 20131230
  Transmission Date: 20140711
  Serious: Yes (Other)
  Sender: FDA-Public Use
  Company Number: 2013000382

PATIENT
  Age: 67 Year
  Sex: Female

DRUGS (11)
  1. ACEON (PERINDOPRIL ERBUMINE) TABLET [Suspect]
     Indication: PRODUCT USED FOR UNKNOWN INDICATION
  2. FUROSEMIDE (FUROSEMIDE) [Suspect]
     Indication: PRODUCT USED FOR UNKNOWN INDICATION
  3. PIROXICAM [Suspect]
     Indication: PRODUCT USED FOR UNKNOWN INDICATION
  4. CALCIUM CARBONATE [Concomitant]
  5. ACETYLSALICYLIC ACID [Concomitant]
  6. CLOPIDOGREL [Concomitant]
  7. GLYCERYL TRINITRATE [Concomitant]
  8. NORETHISTERONE [Concomitant]
  9. PIPERACILLIN SODIUM [Concomitant]
  10. PREDNISOLONE [Concomitant]
  11. SIMVASTATIN [Concomitant]

REACTIONS (2)
  - Dehydration [None]
  - Renal failure acute [None]
